FAERS Safety Report 9067398 (Version 1)
Quarter: 2013Q1

REPORT INFORMATION
  Report Type: Report from Study
  Country: US (occurrence: US)
  Receive Date: 20130214
  Receipt Date: 20130214
  Transmission Date: 20140127
  Serious: Yes (Hospitalization)
  Sender: FDA-Public Use
  Company Number: US-ABBOTT-13P-163-1045443-00

PATIENT
  Age: 67 None
  Sex: Female
  Weight: 113.5 kg

DRUGS (13)
  1. HUMIRA [Suspect]
     Indication: CROHN^S DISEASE
     Dates: start: 20121030, end: 20121030
  2. HUMIRA [Suspect]
     Dates: start: 20121113, end: 20121113
  3. HUMIRA [Suspect]
     Dates: start: 20121127
  4. IMURAN [Concomitant]
     Indication: CROHN^S DISEASE
  5. METFORMIN [Concomitant]
     Indication: DIABETES MELLITUS
  6. CARVEDILOL [Concomitant]
     Indication: HYPERTENSION
  7. LISINOPRIL [Concomitant]
     Indication: HYPERTENSION
  8. PAROXETINE [Concomitant]
     Indication: DEPRESSION
  9. SIMVASTATIN [Concomitant]
     Indication: BLOOD CHOLESTEROL INCREASED
  10. CENTRUM SILVER [Concomitant]
     Indication: VITAMIN SUPPLEMENTATION
  11. CALCIUM + VITAMIN D [Concomitant]
     Indication: SUPPLEMENTATION THERAPY
  12. ASPIRIN [Concomitant]
     Indication: CARDIAC DISORDER
  13. ASPIRIN [Concomitant]
     Indication: PROPHYLAXIS

REACTIONS (13)
  - Colitis [Unknown]
  - Colitis ulcerative [Unknown]
  - Crohn^s disease [Not Recovered/Not Resolved]
  - Diarrhoea [Not Recovered/Not Resolved]
  - Vomiting [Unknown]
  - Drug ineffective [Not Recovered/Not Resolved]
  - Hypophagia [Unknown]
  - Dyspepsia [Unknown]
  - Abdominal pain upper [Not Recovered/Not Resolved]
  - Blood potassium decreased [Unknown]
  - Heart rate decreased [Unknown]
  - Diarrhoea [Not Recovered/Not Resolved]
  - Weight decreased [Unknown]
